FAERS Safety Report 10599791 (Version 5)
Quarter: 2015Q3

REPORT INFORMATION
  Report Type: Spontaneous
  Country: US (occurrence: US)
  Receive Date: 20141121
  Receipt Date: 20150925
  Transmission Date: 20151125
  Serious: Yes (Hospitalization, Other)
  Sender: FDA-Public Use
  Company Number: US-009507513-1411USA008938

PATIENT
  Sex: Female

DRUGS (9)
  1. ALENDRONATE SODIUM. [Suspect]
     Active Substance: ALENDRONATE SODIUM
     Indication: OSTEOPOROSIS
     Dosage: 70 MG, UNK
     Route: 048
     Dates: start: 20080623, end: 20090330
  2. FOSAMAX [Suspect]
     Active Substance: ALENDRONATE SODIUM
     Dosage: 10 MG, UNK
     Route: 048
     Dates: start: 20060630, end: 20070708
  3. FOSAMAX [Suspect]
     Active Substance: ALENDRONATE SODIUM
     Indication: OSTEOPOROSIS
     Dosage: 10 MG, QW
     Route: 048
     Dates: start: 199810
  4. CALCIUM (UNSPECIFIED) [Concomitant]
     Active Substance: CALCIUM
     Dosage: 500 MG, BID
     Route: 048
     Dates: start: 1990
  5. CENTRUM SILVER [Concomitant]
     Active Substance: VITAMINS
     Dosage: ONCE DAILY
     Route: 065
     Dates: start: 1990
  6. GLUCOSAMINE [Concomitant]
     Active Substance: GLUCOSAMINE
     Dosage: 3 TIMES DAILY
     Route: 065
     Dates: start: 1990
  7. FOSAMAX [Suspect]
     Active Substance: ALENDRONATE SODIUM
     Dosage: 70 MG, QW
     Route: 048
     Dates: start: 20070910, end: 200906
  8. VITAMIN D [Concomitant]
     Active Substance: CHOLECALCIFEROL
     Dosage: 1000 MG, QD
     Route: 065
     Dates: start: 1990
  9. ASPIRIN. [Concomitant]
     Active Substance: ASPIRIN
     Dosage: 81 MG, QD
     Route: 065
     Dates: start: 1990

REACTIONS (18)
  - Venous thrombosis limb [Unknown]
  - Cardiomegaly [Unknown]
  - Inappropriate schedule of drug administration [Unknown]
  - Atrial fibrillation [Recovered/Resolved]
  - Fall [Unknown]
  - Spinal column stenosis [Unknown]
  - Postoperative renal failure [Recovered/Resolved]
  - Arthropathy [Unknown]
  - Hyperlipidaemia [Unknown]
  - Deep vein thrombosis [Unknown]
  - Procedural hypertension [Recovering/Resolving]
  - Pericarditis [Unknown]
  - Blood catecholamines increased [Unknown]
  - Hypovolaemia [Recovered/Resolved]
  - Femur fracture [Unknown]
  - Granuloma [Unknown]
  - Head injury [Unknown]
  - Thyroid disorder [Unknown]

NARRATIVE: CASE EVENT DATE: 199810
